FAERS Safety Report 6188976-6 (Version None)
Quarter: 2009Q2

REPORT INFORMATION
  Report Type: 
  Country: None (occurrence: None)
  Receive Date: 20090513
  Receipt Date: 20090501
  Transmission Date: 20091009
  Serious: Yes (Hospitalization)
  Sender: FDA-Public Use
  Company Number: US-PFIZER INC-2006071059

PATIENT
  Sex: Female
  Weight: 44.45 kg

DRUGS (23)
  1. MARAVIROC [Suspect]
     Indication: HIV INFECTION
     Dosage: 150 MG, 2X/DAY
     Route: 048
     Dates: start: 20060531, end: 20060601
  2. FLUCONAZOLE [Concomitant]
     Route: 048
     Dates: start: 19971219
  3. BACTRIM [Concomitant]
     Route: 048
     Dates: start: 19971219
  4. ITRACONAZOLE [Concomitant]
     Route: 048
     Dates: start: 19971219
  5. AMITRIPTLINE HYDROCHLORIDE TAB [Concomitant]
     Route: 048
     Dates: start: 20041015
  6. ALEVE [Concomitant]
     Route: 048
     Dates: start: 20030829
  7. PROMETHAZINE [Concomitant]
     Route: 048
     Dates: start: 20051220
  8. LOPERAMIDE HCL [Concomitant]
     Route: 048
     Dates: start: 20040213
  9. CITALOPRAM HYDROBROMIDE [Concomitant]
     Route: 048
     Dates: start: 20000705
  10. AZITHROMYCIN [Concomitant]
     Route: 048
     Dates: start: 20030811
  11. ASPIRIN [Concomitant]
     Route: 048
     Dates: start: 20060124
  12. MEGACE [Concomitant]
     Route: 048
     Dates: start: 20060228
  13. GUAIFENESIN [Concomitant]
     Route: 048
     Dates: start: 20060228
  14. GUAIFENESIN [Concomitant]
     Route: 048
     Dates: start: 20051230
  15. PSEUDOEPHEDRINE HCL [Concomitant]
     Route: 048
     Dates: start: 20051230
  16. CLARITIN [Concomitant]
     Route: 048
     Dates: start: 20060420
  17. GABAPENTIN [Concomitant]
     Route: 048
     Dates: start: 20060417
  18. MULTI-VITAMINS [Concomitant]
     Route: 048
     Dates: start: 20060415
  19. AMBIEN [Concomitant]
     Route: 048
     Dates: start: 20060415
  20. VIREAD [Concomitant]
     Route: 048
     Dates: start: 20060601
  21. EPZICOM [Concomitant]
     Route: 048
     Dates: start: 20060601
  22. FOSAMPRENAVIR [Concomitant]
     Route: 048
     Dates: start: 20060531
  23. NORVIR [Concomitant]
     Route: 048
     Dates: start: 20060531

REACTIONS (2)
  - MYCOBACTERIAL INFECTION [None]
  - URINARY TRACT INFECTION [None]
